FAERS Safety Report 9858498 (Version 3)
Quarter: 2014Q2

REPORT INFORMATION
  Report Type: Report from Study
  Country: DE (occurrence: DE)
  Receive Date: 20140131
  Receipt Date: 20140429
  Transmission Date: 20141212
  Serious: Yes (Hospitalization)
  Sender: FDA-Public Use
  Company Number: DE-ABBVIE-13P-062-1165924-00

PATIENT
  Sex: Female
  Weight: 58 kg

DRUGS (3)
  1. HUMIRA [Suspect]
     Indication: CROHN^S DISEASE
     Route: 058
     Dates: start: 20120210, end: 20131030
  2. HUMIRA [Suspect]
     Route: 058
     Dates: start: 20131127
  3. HUMIRA [Suspect]
     Route: 058

REACTIONS (1)
  - Enterocutaneous fistula [Recovered/Resolved]
